FAERS Safety Report 22256967 (Version 1)
Quarter: 2023Q2

REPORT INFORMATION
  Report Type: Spontaneous
  Country: DE (occurrence: DE)
  Receive Date: 20230427
  Receipt Date: 20230427
  Transmission Date: 20230721
  Serious: Yes (Other)
  Sender: FDA-Public Use
  Company Number: None

PATIENT
  Age: 22 Year
  Sex: Female
  Weight: 75 kg

DRUGS (2)
  1. XARELTO [Suspect]
     Active Substance: RIVAROXABAN
     Indication: Klippel-Trenaunay syndrome
     Dosage: 5 MG
     Route: 048
     Dates: start: 20220101, end: 20220728
  2. XARELTO [Suspect]
     Active Substance: RIVAROXABAN
     Indication: Coagulopathy
     Route: 048

REACTIONS (6)
  - Skin mass [Not Recovered/Not Resolved]
  - Mobility decreased [Unknown]
  - Heavy menstrual bleeding [Recovered/Resolved]
  - Asthenia [Recovered/Resolved]
  - Dizziness [Recovered/Resolved]
  - Fatigue [Recovered/Resolved]

NARRATIVE: CASE EVENT DATE: 20220701
